FAERS Safety Report 13023805 (Version 1)
Quarter: 2016Q4

REPORT INFORMATION
  Report Type: Spontaneous
  Country: US (occurrence: US)
  Receive Date: 20161213
  Receipt Date: 20161213
  Transmission Date: 20170207
  Serious: No
  Sender: FDA-Public Use
  Company Number: US-LPDUSPRD-20160416

PATIENT
  Age: 46 Year
  Sex: Female

DRUGS (1)
  1. VENOFER [Suspect]
     Active Substance: IRON SUCROSE
     Dosage: 200 MG SLOW PUSH, 20 MINUTES
     Route: 042
     Dates: start: 20160404, end: 20160404

REACTIONS (3)
  - Hyperaesthesia [Recovered/Resolved]
  - Off label use [Unknown]
  - Burning sensation [Recovered/Resolved]

NARRATIVE: CASE EVENT DATE: 20160404
